FAERS Safety Report 18575988 (Version 2)
Quarter: 2020Q4

REPORT INFORMATION
  Report Type: Report from Study
  Country: CA (occurrence: CA)
  Receive Date: 20201203
  Receipt Date: 20201224
  Transmission Date: 20210114
  Serious: Yes (Other)
  Sender: FDA-Public Use
  Company Number: CA-TAKEDA-2018TUS031983

PATIENT
  Age: 22 Year
  Sex: Female

DRUGS (8)
  1. VEDOLIZUMAB [Suspect]
     Active Substance: VEDOLIZUMAB
     Dosage: 300 MILLIGRAM
     Route: 042
  2. PURINETHOL [Concomitant]
     Active Substance: MERCAPTOPURINE
     Dosage: UNK, QD
     Dates: start: 2008
  3. HYDROXYZINE [Concomitant]
     Active Substance: HYDROXYZINE HYDROCHLORIDE
     Dosage: UNK
     Route: 048
  4. VEDOLIZUMAB [Suspect]
     Active Substance: VEDOLIZUMAB
     Dosage: 300 MILLIGRAM
     Route: 042
  5. CORTISONE [Concomitant]
     Active Substance: CORTISONE
     Indication: PSORIASIS
     Dosage: UNK
     Route: 061
  6. APO SULFATRIM [Concomitant]
     Active Substance: SULFAMETHOXAZOLE\TRIMETHOPRIM
     Dosage: UNK UNK, BID
     Dates: start: 20180206
  7. VEDOLIZUMAB [Suspect]
     Active Substance: VEDOLIZUMAB
     Indication: COLITIS ULCERATIVE
     Dosage: 300 MILLIGRAM
     Route: 042
     Dates: start: 20180209
  8. VEDOLIZUMAB [Suspect]
     Active Substance: VEDOLIZUMAB
     Dosage: 300 MILLIGRAM, Q4WEEKS
     Route: 042
     Dates: start: 20201218

REACTIONS (6)
  - Constipation [Unknown]
  - Abdominal distension [Unknown]
  - Off label use [Unknown]
  - Haemorrhoidal haemorrhage [Unknown]
  - Colitis ulcerative [Unknown]
  - Fatigue [Unknown]

NARRATIVE: CASE EVENT DATE: 20180209
